FAERS Safety Report 17393559 (Version 5)
Quarter: 2020Q2

REPORT INFORMATION
  Report Type: Report from Study
  Country: US (occurrence: US)
  Receive Date: 20200208
  Receipt Date: 20200622
  Transmission Date: 20200713
  Serious: Yes (Other)
  Sender: FDA-Public Use
  Company Number: NVSC2020US028599

PATIENT
  Age: 67 Year
  Sex: Male

DRUGS (2)
  1. BEOVU [Suspect]
     Active Substance: BROLUCIZUMAB-DBLL
     Indication: NEOVASCULAR AGE-RELATED MACULAR DEGENERATION
     Dosage: UNK
     Route: 047
     Dates: start: 20200112
  2. BEOVU [Suspect]
     Active Substance: BROLUCIZUMAB-DBLL
     Dosage: UNK, IN LEFT EYE
     Route: 047
     Dates: start: 20200504

REACTIONS (5)
  - Visual acuity reduced [Unknown]
  - Product dose omission [Unknown]
  - Neovascular age-related macular degeneration [Not Recovered/Not Resolved]
  - Orbital space occupying lesion [Unknown]
  - Visual impairment [Unknown]

NARRATIVE: CASE EVENT DATE: 20200113
